FAERS Safety Report 17101221 (Version 1)
Quarter: 2019Q4

REPORT INFORMATION
  Report Type: Spontaneous
  Country: US (occurrence: US)
  Receive Date: 20191202
  Receipt Date: 20191202
  Transmission Date: 20200122
  Serious: No
  Sender: FDA-Public Use
  Company Number: US-ANTARES PHARMA, INC.-2019-SPO-OT-0047

PATIENT

DRUGS (1)
  1. OTREXUP [Suspect]
     Active Substance: METHOTREXATE
     Indication: ARTHROPATHY
     Dosage: 0.6 ML, UNK
     Route: 058

REACTIONS (2)
  - Dry mouth [Unknown]
  - Fatigue [Unknown]
